FAERS Safety Report 7554121-5 (Version None)
Quarter: 2011Q2

REPORT INFORMATION
  Report Type: 
  Country: None (occurrence: None)
  Receive Date: 20110614
  Receipt Date: 20110614
  Transmission Date: 20111010
  Serious: Yes (Other)
  Sender: FDA-Public Use
  Company Number: None

PATIENT
  Age: 32 Year
  Sex: Male
  Weight: 81.6475 kg

DRUGS (2)
  1. CIPROFLOXACIN HCL [Suspect]
     Indication: CYSTITIS
     Dosage: 250MG TWICE A DAY
     Dates: start: 20110322, end: 20110325
  2. CIPROFLOXACIN HCL [Suspect]
     Indication: EPIDIDYMITIS
     Dosage: 250MG TWICE A DAY
     Dates: start: 20110322, end: 20110325

REACTIONS (7)
  - VISUAL IMPAIRMENT [None]
  - ARTHRALGIA [None]
  - GAIT DISTURBANCE [None]
  - TENDON DISORDER [None]
  - PAIN [None]
  - NO THERAPEUTIC RESPONSE [None]
  - NERVOUS SYSTEM DISORDER [None]
